FAERS Safety Report 4851968-0 (Version None)
Quarter: 2005Q4

REPORT INFORMATION
  Report Type: 
  Country: None (occurrence: None)
  Receive Date: 20051123
  Receipt Date: 20050922
  Transmission Date: 20060501
  Serious: No
  Sender: FDA-Public Use
  Company Number: 218033

PATIENT
  Age: 22 Year
  Sex: Female
  Weight: 69.4 kg

DRUGS (1)
  1. RAPTIVA [Suspect]
     Indication: PSORIASIS
     Dosage: 70 MG, 1/WEEK, SUBCUTANEOUS
     Route: 058
     Dates: start: 20050406

REACTIONS (3)
  - ARTHRALGIA [None]
  - CYTOMEGALOVIRUS INFECTION [None]
  - PSORIASIS [None]
